FAERS Safety Report 7026989-2 (Version None)
Quarter: 2010Q4

REPORT INFORMATION
  Report Type: 
  Country: None (occurrence: None)
  Receive Date: 20101004
  Receipt Date: 20100923
  Transmission Date: 20110411
  Serious: Yes (Death)
  Sender: FDA-Public Use
  Company Number: CA-JNJFOC-20100907574

PATIENT
  Sex: Female

DRUGS (12)
  1. REMICADE [Suspect]
     Indication: CROHN'S DISEASE
     Route: 042
  2. REMICADE [Suspect]
     Route: 042
  3. PREDNISONE [Concomitant]
     Route: 048
  4. TRAMADOL HCL [Concomitant]
  5. IMURAN [Concomitant]
  6. SYNTHROID [Concomitant]
  7. METOPROLOL TARTRATE [Concomitant]
  8. HYDRA-ZIDE [Concomitant]
  9. CORTIFOAM [Concomitant]
  10. CIPROFLOXACIN [Concomitant]
  11. FLAGYL [Concomitant]
  12. TYLENOL W/ CODEINE NO. 3 [Concomitant]

REACTIONS (1)
  - MYOCARDIAL INFARCTION [None]
